FAERS Safety Report 16918338 (Version 1)
Quarter: 2019Q4

REPORT INFORMATION
  Report Type: Spontaneous
  Country: FR (occurrence: FR)
  Receive Date: 20191015
  Receipt Date: 20191015
  Transmission Date: 20200122
  Serious: Yes (Hospitalization)
  Sender: FDA-Public Use
  Company Number: FR-PFIZER INC-2019182416

PATIENT
  Age: 65 Year
  Sex: Female
  Weight: 52 kg

DRUGS (4)
  1. CAELYX [Suspect]
     Active Substance: DOXORUBICIN HYDROCHLORIDE
     Indication: METASTASES TO PERITONEUM
     Dosage: UNK
     Route: 041
     Dates: start: 20181011, end: 20190314
  2. ATEZOLIZUMAB. [Suspect]
     Active Substance: ATEZOLIZUMAB
     Indication: METASTASES TO PERITONEUM
     Dosage: UNK
     Route: 041
     Dates: start: 20181011, end: 20190314
  3. CARBOPLATIN. [Suspect]
     Active Substance: CARBOPLATIN
     Indication: METASTASES TO PERITONEUM
     Dosage: UNK
     Route: 041
     Dates: start: 20181011, end: 20190314
  4. AVASTIN [Suspect]
     Active Substance: BEVACIZUMAB
     Indication: METASTASES TO PERITONEUM
     Dosage: UNK
     Route: 041
     Dates: start: 20181011, end: 20190314

REACTIONS (5)
  - Thrombotic microangiopathy [Not Recovered/Not Resolved]
  - Hypertension [Recovered/Resolved]
  - Proteinuria [Not Recovered/Not Resolved]
  - Left ventricular dysfunction [Recovered/Resolved]
  - Chronic kidney disease [Not Recovered/Not Resolved]

NARRATIVE: CASE EVENT DATE: 201901
